FAERS Safety Report 11513507 (Version 2)
Quarter: 2015Q3

REPORT INFORMATION
  Report Type: Spontaneous
  Country: US (occurrence: US)
  Receive Date: 20150916
  Receipt Date: 20150918
  Transmission Date: 20151125
  Serious: No
  Sender: FDA-Public Use
  Company Number: US-RB-071043-14

PATIENT

DRUGS (1)
  1. MUCINEX [Suspect]
     Active Substance: GUAIFENESIN
     Indication: COUGH
     Dosage: 600MG. DRUG WAS LAST USED ON 19-NOV-2014 AT 9:00PM, PATIENT TOOK 1-2 TABLETS EVERY 12 HOURS,FREQUENC
     Route: 065

REACTIONS (1)
  - Drug ineffective [Not Recovered/Not Resolved]
